FAERS Safety Report 7146413-9 (Version None)
Quarter: 2010Q4

REPORT INFORMATION
  Report Type: 
  Country: None (occurrence: None)
  Receive Date: 20101208
  Receipt Date: 20100709
  Transmission Date: 20110411
  Serious: No
  Sender: FDA-Public Use
  Company Number: US-BRISTOL-MYERS SQUIBB COMPANY-15185663

PATIENT
  Sex: Female

DRUGS (3)
  1. PRAVACHOL [Suspect]
     Dosage: 3 MONTHS AGO
     Dates: start: 20100101
  2. NEXIUM [Concomitant]
  3. LISINOPRIL [Concomitant]

REACTIONS (1)
  - AGEUSIA [None]
